FAERS Safety Report 10517815 (Version 1)
Quarter: 2014Q4

REPORT INFORMATION
  Report Type: Spontaneous
  Country: BR (occurrence: BR)
  Receive Date: 20141015
  Receipt Date: 20141015
  Transmission Date: 20150528
  Serious: Yes (Hospitalization)
  Sender: FDA-Public Use
  Company Number: BR-ABBVIE-14K-020-1294275-00

PATIENT
  Age: 55 Year
  Sex: Male
  Weight: 68 kg

DRUGS (6)
  1. CLOPIDOGREL BISULFATE. [Concomitant]
     Active Substance: CLOPIDOGREL BISULFATE
     Indication: BLOOD CHOLESTEROL INCREASED
     Dosage: AT NIGHT
     Route: 048
     Dates: start: 20140913
  2. ZETIA [Concomitant]
     Active Substance: EZETIMIBE
     Indication: PROPHYLAXIS
  3. HUMIRA [Suspect]
     Active Substance: ADALIMUMAB
     Indication: ANKYLOSING SPONDYLITIS
     Route: 058
     Dates: start: 20121115
  4. ZETIA [Concomitant]
     Active Substance: EZETIMIBE
     Indication: ARTERIOSCLEROSIS
     Route: 048
     Dates: start: 201402
  5. ANCORON [Concomitant]
     Active Substance: AMIODARONE HYDROCHLORIDE
     Indication: ARRHYTHMIA
     Route: 048
     Dates: start: 2010
  6. ARADOIS [Concomitant]
     Active Substance: LOSARTAN POTASSIUM
     Indication: HYPERTENSION
     Route: 048

REACTIONS (11)
  - Decreased appetite [Not Recovered/Not Resolved]
  - Headache [Recovered/Resolved]
  - Pyrexia [Recovering/Resolving]
  - Viral infection [Unknown]
  - Fatigue [Not Recovered/Not Resolved]
  - Weight decreased [Recovered/Resolved]
  - Blood urea decreased [Unknown]
  - Asthenia [Not Recovered/Not Resolved]
  - Ankylosing spondylitis [Not Recovered/Not Resolved]
  - Blood lactate dehydrogenase increased [Unknown]
  - Pain [Recovering/Resolving]

NARRATIVE: CASE EVENT DATE: 201409
